FAERS Safety Report 22213938 (Version 1)
Quarter: 2023Q2

REPORT INFORMATION
  Report Type: Spontaneous
  Country: None (occurrence: US)
  Receive Date: 20230414
  Receipt Date: 20230414
  Transmission Date: 20230722
  Serious: No
  Sender: FDA-Public Use
  Company Number: US-Hisamitsu Pharmaceutical-2140385

PATIENT
  Sex: Female

DRUGS (2)
  1. SALONPAS PAIN RELIEF [Suspect]
     Active Substance: MENTHOL\METHYL SALICYLATE
     Indication: Analgesic therapy
     Route: 003
     Dates: start: 20220806, end: 20220812
  2. SALONPAS PAIN RELIEF [Suspect]
     Active Substance: MENTHOL\METHYL SALICYLATE

REACTIONS (5)
  - Weight decreased [None]
  - Abdominal discomfort [None]
  - Diarrhoea [None]
  - Anal incontinence [None]
  - Intentional product misuse [None]
